FAERS Safety Report 7022582-6 (Version None)
Quarter: 2010Q3

REPORT INFORMATION
  Report Type: 
  Country: None (occurrence: None)
  Receive Date: 20100930
  Receipt Date: 20100921
  Transmission Date: 20110219
  Serious: Yes (Other)
  Sender: FDA-Public Use
  Company Number: NO-PFIZER INC-2010120098

PATIENT
  Age: 66 Year
  Sex: Female

DRUGS (1)
  1. SUTENT [Suspect]
     Indication: RENAL CANCER METASTATIC
     Dosage: 50 MG, UNK
     Dates: start: 20100101

REACTIONS (9)
  - BLOOD CREATININE INCREASED [None]
  - COGNITIVE DISORDER [None]
  - DISEASE PROGRESSION [None]
  - FATIGUE [None]
  - HAEMOGLOBIN DECREASED [None]
  - LISTLESS [None]
  - RENAL CANCER METASTATIC [None]
  - RENAL FAILURE [None]
  - SOMNOLENCE [None]
